FAERS Safety Report 5317799-2 (Version None)
Quarter: 2007Q2

REPORT INFORMATION
  Report Type: 
  Country: None (occurrence: None)
  Receive Date: 20070502
  Receipt Date: 20070502
  Transmission Date: 20071010
  Serious: Yes (Other)
  Sender: FDA-Public Use
  Company Number: None

PATIENT
  Age: 55 Year
  Sex: Male
  Weight: 79.3795 kg

DRUGS (5)
  1. ETODOLAC [Suspect]
     Indication: INFLAMMATION
     Dosage: 1 TABLET TWICE DAILY PO
     Route: 048
     Dates: start: 20070316, end: 20070404
  2. ETODOLAC [Suspect]
     Indication: POST PROCEDURAL COMPLICATION
     Dosage: 1 TABLET TWICE DAILY PO
     Route: 048
     Dates: start: 20070316, end: 20070404
  3. ETODOLAC [Suspect]
     Indication: INFLAMMATION
     Dosage: 1 TABLET TWICE DAILY PO
     Route: 048
     Dates: start: 20070426, end: 20070501
  4. ETODOLAC [Suspect]
     Indication: POST PROCEDURAL COMPLICATION
     Dosage: 1 TABLET TWICE DAILY PO
     Route: 048
     Dates: start: 20070426, end: 20070501
  5. HYDROCODINE [Concomitant]

REACTIONS (3)
  - DYSPHAGIA [None]
  - GLOSSITIS [None]
  - SWOLLEN TONGUE [None]
